FAERS Safety Report 11833153 (Version 7)
Quarter: 2020Q3

REPORT INFORMATION
  Report Type: Report from Study
  Country: JP (occurrence: JP)
  Receive Date: 20151214
  Receipt Date: 20160429
  Transmission Date: 20201104
  Serious: Yes (Life-Threatening, Hospitalization, Disabling)
  Sender: FDA-Public Use
  Company Number: JP-JNJFOC-20151206662

PATIENT
  Age: 38 Year
  Sex: Male
  Weight: 51.1 kg

DRUGS (10)
  1. MIYA?BM [Concomitant]
     Active Substance: CLOSTRIDIUM BUTYRICUM SPORES STRAIN M-55
     Indication: CROHN^S DISEASE
     Route: 048
     Dates: start: 20040422
  2. POLYFUL [Concomitant]
     Active Substance: CALCIUM POLYCARBOPHIL
     Indication: CROHN^S DISEASE
     Route: 048
     Dates: start: 20140829
  3. USTEKINUMAB [Suspect]
     Active Substance: USTEKINUMAB
     Route: 065
  4. USTEKINUMAB [Suspect]
     Active Substance: USTEKINUMAB
     Indication: CROHN^S DISEASE
     Route: 065
     Dates: start: 20130410
  5. FOIPAN [Concomitant]
     Active Substance: CAMOSTAT MESYLATE
     Indication: HYPERAMYLASAEMIA
     Route: 048
     Dates: start: 20100812
  6. ADSORBIN [Concomitant]
     Active Substance: ALUMINUM SILICATE
     Indication: CROHN^S DISEASE
     Route: 048
     Dates: start: 20040902
  7. ALBUMIN TANNATE [Concomitant]
     Active Substance: ALBUMIN BOVINE\TANNIC ACID
     Indication: CROHN^S DISEASE
     Route: 048
     Dates: start: 20040902
  8. LOPERAMIDE HYDROCHLORIDE. [Concomitant]
     Active Substance: LOPERAMIDE HYDROCHLORIDE
     Indication: CROHN^S DISEASE
     Route: 048
     Dates: start: 20040624
  9. GASTER [Concomitant]
     Active Substance: FAMOTIDINE
     Route: 048
     Dates: start: 20040330
  10. OXAROL [Concomitant]
     Active Substance: MAXACALCITOL
     Indication: SKIN PAPILLOMA
     Route: 062
     Dates: start: 20140905

REACTIONS (1)
  - Subarachnoid haemorrhage [Recovered/Resolved with Sequelae]

NARRATIVE: CASE EVENT DATE: 20151206
